FAERS Safety Report 9452781 (Version 1)
Quarter: 2013Q3

REPORT INFORMATION
  Report Type: Spontaneous
  Country: US (occurrence: None)
  Receive Date: 20130807
  Receipt Date: 20130807
  Transmission Date: 20140515
  Serious: Yes (Other)
  Sender: FDA-Public Use
  Company Number: IMP_06779_2013

PATIENT
  Age: 58 Year
  Sex: Male

DRUGS (1)
  1. CARBIDOPA-LEVODOPA-B [Suspect]
     Indication: PRODUCT USED FOR UNKNOWN INDICATION
     Dosage: DF

REACTIONS (4)
  - Extraskeletal ossification [None]
  - Fall [None]
  - Radius fracture [None]
  - Dyskinesia [None]
